FAERS Safety Report 10653458 (Version 4)
Quarter: 2016Q3

REPORT INFORMATION
  Report Type: Spontaneous
  Country: CA (occurrence: CA)
  Receive Date: 20141216
  Receipt Date: 20160720
  Transmission Date: 20161109
  Serious: Yes (Hospitalization, Other)
  Sender: FDA-Public Use
  Company Number: CA-ROCHE-1253615

PATIENT
  Sex: Female

DRUGS (9)
  1. XOLAIR [Suspect]
     Active Substance: OMALIZUMAB
     Route: 058
     Dates: start: 20090514
  2. ALVESCO [Concomitant]
     Active Substance: CICLESONIDE
  3. PREDNISONE. [Concomitant]
     Active Substance: PREDNISONE
  4. BRICANYL [Concomitant]
     Active Substance: TERBUTALINE SULFATE
  5. CLAVULIN [Concomitant]
     Active Substance: AMOXICILLIN\CLAVULANIC ACID
  6. XOLAIR [Suspect]
     Active Substance: OMALIZUMAB
     Indication: ASTHMA
     Route: 058
     Dates: start: 20081113
  7. LEVAQUIN [Concomitant]
     Active Substance: LEVOFLOXACIN
  8. ADVAIR HFA [Concomitant]
     Active Substance: FLUTICASONE PROPIONATE\SALMETEROL XINAFOATE
  9. SINGULAIR [Concomitant]
     Active Substance: MONTELUKAST SODIUM

REACTIONS (7)
  - Bronchitis [Unknown]
  - Cough [Unknown]
  - Cystic fibrosis [Unknown]
  - Abnormal faeces [Unknown]
  - Abdominal pain [Unknown]
  - Forced expiratory volume decreased [Unknown]
  - Weight increased [Unknown]

NARRATIVE: CASE EVENT DATE: 2013
